FAERS Safety Report 4947831-7 (Version None)
Quarter: 2006Q1

REPORT INFORMATION
  Report Type: 
  Country: None (occurrence: None)
  Receive Date: 20060310
  Receipt Date: 20060302
  Transmission Date: 20060701
  Serious: Yes (Other)
  Sender: FDA-Public Use
  Company Number: US017016

PATIENT
  Age: 36 Year
  Sex: Female

DRUGS (6)
  1. ARSENIC TRIOXIDE [Suspect]
     Indication: ACUTE PROMYELOCYTIC LEUKAEMIA
     Dosage: 8.1 MG QD INTRAVENOUS
     Route: 042
     Dates: start: 20050609, end: 20050618
  2. L-ASPARTATE POTASSIUM [Concomitant]
  3. CEFEPIME DIHYDROCHLORIDE [Concomitant]
  4. VANCOMYCIN HYDROCHLORIDE [Concomitant]
  5. MICAFUNGIN SODIUM [Concomitant]
  6. SULFAMETHOXAZOLE W/TRIEMTHOPRIM [Concomitant]

REACTIONS (3)
  - ALANINE AMINOTRANSFERASE INCREASED [None]
  - ASPARTATE AMINOTRANSFERASE INCREASED [None]
  - HEPATIC FUNCTION ABNORMAL [None]
